FAERS Safety Report 5283093-1 (Version None)
Quarter: 2007Q1

REPORT INFORMATION
  Report Type: 
  Country: None (occurrence: None)
  Receive Date: 20061226
  Receipt Date: 20061023
  Transmission Date: 20070707
  Serious: Yes (Other)
  Sender: FDA-Public Use
  Company Number: PHEH2006US07562

PATIENT
  Age: 81 Year
  Sex: Male

DRUGS (2)
  1. ENABLEX [Suspect]
     Indication: NOCTURIA
     Dosage: 7.5 MG, QD
     Dates: start: 20060605, end: 20060613
  2. RANITIDINE [Concomitant]

REACTIONS (1)
  - URINARY RETENTION [None]
